FAERS Safety Report 6569159-4 (Version None)
Quarter: 2010Q1

REPORT INFORMATION
  Report Type: 
  Country: None (occurrence: None)
  Receive Date: 20100203
  Receipt Date: 20100129
  Transmission Date: 20100710
  Serious: Yes (Death)
  Sender: FDA-Public Use
  Company Number: BW-GILEAD-2010-0026816

PATIENT
  Age: 48 Year
  Sex: Male
  Weight: 40.8 kg

DRUGS (2)
  1. TRUVADA [Suspect]
     Indication: HIV INFECTION
     Route: 048
     Dates: start: 20090529, end: 20091220
  2. EFAVIRENZ [Concomitant]
     Indication: HIV INFECTION
     Route: 048
     Dates: start: 20090529, end: 20091220

REACTIONS (1)
  - DEATH [None]
